FAERS Safety Report 23560066 (Version 1)
Quarter: 2024Q1

REPORT INFORMATION
  Report Type: Spontaneous
  Country: JP (occurrence: JP)
  Receive Date: 20240223
  Receipt Date: 20240223
  Transmission Date: 20240410
  Serious: Yes (Other)
  Sender: FDA-Public Use
  Company Number: JP-AMGEN-JPNSP2024023904

PATIENT

DRUGS (2)
  1. BLINCYTO [Suspect]
     Active Substance: BLINATUMOMAB
     Indication: B precursor type acute leukaemia
     Dosage: UNK, DRIP INFUSION
     Route: 042
     Dates: start: 20240108, end: 2024
  2. BLINCYTO [Suspect]
     Active Substance: BLINATUMOMAB
     Dosage: UNK, DOSE INCREASED AT CYCLE 1
     Route: 042
     Dates: start: 2024

REACTIONS (3)
  - Cytopenia [Recovered/Resolved]
  - Atypical lymphocytes increased [Unknown]
  - Pyrexia [Unknown]
